FAERS Safety Report 10133939 (Version 1)
Quarter: 2014Q2

REPORT INFORMATION
  Report Type: Spontaneous
  Country: BE (occurrence: BE)
  Receive Date: 20140428
  Receipt Date: 20140428
  Transmission Date: 20141212
  Serious: Yes (Hospitalization)
  Sender: FDA-Public Use
  Company Number: BE-MYLANLABS-2014S1009103

PATIENT
  Age: 75 Year
  Sex: Female

DRUGS (12)
  1. LITHIUM [Suspect]
     Route: 065
  2. MESULID [Interacting]
     Indication: PAIN
     Route: 065
  3. EFFEXOR [Concomitant]
     Dosage: 225MG, EFEXOR EXEL
     Route: 065
  4. NESTROLAN [Concomitant]
     Dosage: 100MG
     Route: 065
  5. CYMBALTA [Concomitant]
     Dosage: 60MG
     Route: 065
  6. EMCONCOR [Concomitant]
     Dosage: 5MG
     Route: 065
  7. SIMVASTATINE EG [Concomitant]
     Dosage: 20MG
     Route: 065
  8. GLUCOPHAGE [Concomitant]
     Route: 065
  9. PIRACETAM [Concomitant]
     Dosage: 1.2G, PIRACETAM EG
     Route: 065
  10. XANAX [Concomitant]
     Dosage: 1MG
     Route: 065
  11. IMOVANE [Concomitant]
     Dosage: 7.5MG
     Route: 065
  12. TEMESTA [Concomitant]
     Dosage: 2.5MG
     Route: 065

REACTIONS (8)
  - Toxicity to various agents [Recovering/Resolving]
  - Drug interaction [Recovering/Resolving]
  - Aphasia [Unknown]
  - Disorientation [Unknown]
  - Confusional state [Unknown]
  - Restlessness [Recovered/Resolved]
  - Speech disorder [Unknown]
  - Gait disturbance [Recovered/Resolved]
